FAERS Safety Report 5649480-4 (Version None)
Quarter: 2008Q1

REPORT INFORMATION
  Report Type: 
  Country: None (occurrence: None)
  Receive Date: 20080131
  Receipt Date: 20071003
  Transmission Date: 20080703
  Serious: No
  Sender: FDA-Public Use
  Company Number: US200709002221

PATIENT
  Age: 59 Year
  Sex: Female

DRUGS (3)
  1. BYETTA [Suspect]
     Indication: TYPE 2 DIABETES MELLITUS
     Dosage: 10 UG, 2/D, SUBCUTANEOUS
     Route: 058
     Dates: start: 20070907
  2. GLUCOVANCE [Concomitant]
  3. DRUG USED IN DIABETES [Concomitant]

REACTIONS (4)
  - DECREASED APPETITE [None]
  - DRUG DISPENSING ERROR [None]
  - DRUG EFFECT DECREASED [None]
  - VOMITING [None]
